FAERS Safety Report 5885437-6 (Version None)
Quarter: 2008Q3

REPORT INFORMATION
  Report Type: 
  Country: None (occurrence: None)
  Receive Date: 20080916
  Receipt Date: 20080911
  Transmission Date: 20090109
  Serious: Yes (Other)
  Sender: FDA-Public Use
  Company Number: US-ASTRAZENECA-2007UW05915

PATIENT
  Age: 579 Month
  Sex: Female

DRUGS (3)
  1. SEROQUEL [Suspect]
     Indication: DEPRESSION
     Route: 048
     Dates: start: 20010402
  2. RISPERDAL [Concomitant]
     Dosage: 0.5 - 1 MG
     Dates: start: 20031223, end: 20040311
  3. ZYPREXA [Concomitant]
     Dosage: 5 - 15 MG
     Dates: start: 20001101, end: 20010430

REACTIONS (2)
  - NEUROPATHY PERIPHERAL [None]
  - TYPE 2 DIABETES MELLITUS [None]
